FAERS Safety Report 23854674 (Version 1)
Quarter: 2024Q2

REPORT INFORMATION
  Report Type: Spontaneous
  Country: US (occurrence: US)
  Receive Date: 20240514
  Receipt Date: 20240514
  Transmission Date: 20240716
  Serious: No
  Sender: FDA-Public Use
  Company Number: US-Eisai-EC-2024-163719

PATIENT
  Age: 69 Year
  Sex: Female

DRUGS (5)
  1. LEQEMBI [Suspect]
     Active Substance: LECANEMAB-IRMB
     Indication: Dementia Alzheimer^s type
     Dosage: DOSE UNKNOWN
     Route: 042
     Dates: start: 20240326
  2. ROSUVASTATIN [Concomitant]
     Active Substance: ROSUVASTATIN
  3. METOPROLOL [Concomitant]
     Active Substance: METOPROLOL
  4. ZOLOFT [Concomitant]
     Active Substance: SERTRALINE HYDROCHLORIDE
  5. VALSARTAN WITH HYDROCHLOROTHIAZIDE [Concomitant]

REACTIONS (2)
  - Gingival pain [Not Recovered/Not Resolved]
  - Gingival swelling [Not Recovered/Not Resolved]

NARRATIVE: CASE EVENT DATE: 20240301
